FAERS Safety Report 12658130 (Version 1)
Quarter: 2016Q3

REPORT INFORMATION
  Report Type: Report from Study
  Country: CA (occurrence: CA)
  Receive Date: 20160817
  Receipt Date: 20160817
  Transmission Date: 20161109
  Serious: Yes (Other)
  Sender: FDA-Public Use
  Company Number: CA-AMGEN-CANSL2016105700

PATIENT
  Age: 71 Year
  Sex: Female

DRUGS (6)
  1. VITAMIN D [Concomitant]
     Active Substance: CHOLECALCIFEROL
     Dosage: UNK
  2. ENBREL [Suspect]
     Active Substance: ETANERCEPT
     Dosage: 50 MG, Q2WK
     Route: 065
  3. ENBREL [Suspect]
     Active Substance: ETANERCEPT
     Indication: RHEUMATOID ARTHRITIS
     Dosage: 50 MG, QWK
     Route: 065
     Dates: start: 20140618
  4. OMEGA 3 [Concomitant]
     Active Substance: OMEGA-3 FATTY ACIDS
     Dosage: UNK
  5. PROBIOTIC [Concomitant]
     Active Substance: PROBIOTICS NOS
     Dosage: UNK
  6. XANTHINE [Concomitant]
     Dosage: UNK

REACTIONS (9)
  - Micturition urgency [Unknown]
  - Escherichia test positive [Unknown]
  - Nasal crusting [Unknown]
  - Rhinalgia [Unknown]
  - Spinal operation [Unknown]
  - White blood cell count decreased [Unknown]
  - Epistaxis [Unknown]
  - Nasal dryness [Unknown]
  - Inappropriate schedule of drug administration [Unknown]
